FAERS Safety Report 17596069 (Version 1)
Quarter: 2020Q1

REPORT INFORMATION
  Report Type: Report from Study
  Country: None (occurrence: RO)
  Receive Date: 20200330
  Receipt Date: 20200330
  Transmission Date: 20200409
  Serious: Yes (Hospitalization)
  Sender: FDA-Public Use
  Company Number: RO-ABBVIE-20K-135-3324812-00

PATIENT
  Age: 67 Year
  Sex: Male

DRUGS (3)
  1. ISICOM [Concomitant]
     Active Substance: CARBIDOPA\LEVODOPA
     Indication: PARKINSON^S DISEASE
     Route: 048
  2. DUODOPA [Suspect]
     Active Substance: CARBIDOPA\LEVODOPA
     Indication: PARKINSON^S DISEASE
     Dosage: DM=3.00??DC=3.40??ED=2.50??NRED=2;??DMN=0.00??DCN=0.00??EDN=0.00??NREDN=0
     Route: 050
     Dates: start: 20140401, end: 20200323
  3. ISICOM [Concomitant]
     Active Substance: CARBIDOPA\LEVODOPA
     Route: 048

REACTIONS (2)
  - Device occlusion [Unknown]
  - Embedded device [Not Recovered/Not Resolved]

NARRATIVE: CASE EVENT DATE: 20200323
